FAERS Safety Report 9345396 (Version 1)
Quarter: 2013Q2

REPORT INFORMATION
  Report Type: Spontaneous
  Country: US (occurrence: US)
  Receive Date: 20130613
  Receipt Date: 20130613
  Transmission Date: 20140414
  Serious: No
  Sender: FDA-Public Use
  Company Number: US-B.I. PHARMACEUTICALS,INC./RIDGEFIELD-2013-BI-16337BP

PATIENT
  Age: 47 Year
  Sex: Male

DRUGS (8)
  1. PRADAXA [Suspect]
     Indication: CEREBROVASCULAR ACCIDENT PROPHYLAXIS
     Dosage: 300 MG
     Route: 048
     Dates: start: 20130425
  2. PRADAXA [Suspect]
     Indication: ATRIAL FIBRILLATION
  3. ALDACTONE [Concomitant]
     Route: 048
  4. COREG [Concomitant]
     Route: 048
  5. DIGOXIN [Concomitant]
     Route: 048
  6. POTASSIUM CHLORIDE [Concomitant]
     Route: 048
  7. LASIX [Concomitant]
     Route: 048
  8. NYTHALAZINE [Concomitant]
     Route: 048

REACTIONS (1)
  - Heart rate increased [Recovered/Resolved]
